FAERS Safety Report 6645793-8 (Version None)
Quarter: 2010Q1

REPORT INFORMATION
  Report Type: 
  Country: None (occurrence: None)
  Receive Date: 20100323
  Receipt Date: 20100312
  Transmission Date: 20100710
  Serious: Yes (Other)
  Sender: FDA-Public Use
  Company Number: US-JNJFOC-20100304399

PATIENT
  Sex: Female
  Weight: 79.83 kg

DRUGS (4)
  1. REMICADE [Suspect]
     Indication: RHEUMATOID ARTHRITIS
     Route: 042
  2. METHOTREXATE [Suspect]
     Indication: RHEUMATOID ARTHRITIS
  3. CELEBREX [Concomitant]
     Indication: RHEUMATOID ARTHRITIS
  4. AIRBORNE [Concomitant]
     Indication: MEDICAL DIET

REACTIONS (5)
  - ALOPECIA [None]
  - ARTHRALGIA [None]
  - DRUG EFFECT DECREASED [None]
  - INFLUENZA [None]
  - LIGAMENT OPERATION [None]
